FAERS Safety Report 6074068-3 (Version None)
Quarter: 2009Q1

REPORT INFORMATION
  Report Type: 
  Country: None (occurrence: None)
  Receive Date: 20090211
  Receipt Date: 20090206
  Transmission Date: 20090719
  Serious: Yes (Other)
  Sender: FDA-Public Use
  Company Number: A0756592A

PATIENT
  Age: 40 Year
  Sex: Female
  Weight: 51 kg

DRUGS (4)
  1. SERETIDE [Suspect]
     Indication: BRONCHITIS
     Route: 055
     Dates: start: 20081106
  2. SERETIDE [Suspect]
     Route: 055
  3. THEOPHYLLINE [Concomitant]
     Dates: start: 19900101
  4. DEFLAZACORT [Concomitant]
     Dosage: .5MG FOUR TIMES PER DAY
     Route: 048
     Dates: start: 19940101

REACTIONS (9)
  - BACK PAIN [None]
  - COUGH [None]
  - INITIAL INSOMNIA [None]
  - NASAL DISCOMFORT [None]
  - OROPHARYNGEAL PAIN [None]
  - PNEUMONIA [None]
  - PYREXIA [None]
  - RALES [None]
  - SLEEP DISORDER [None]
